FAERS Safety Report 10614511 (Version 2)
Quarter: 2014Q4

REPORT INFORMATION
  Report Type: Report from Study
  Country: US (occurrence: US)
  Receive Date: 20141129
  Receipt Date: 20141129
  Transmission Date: 20150529
  Serious: Yes (Other)
  Sender: FDA-Public Use
  Company Number: US-ABBVIE-14P-163-1237231-00

PATIENT
  Age: 35 Year
  Sex: Female
  Weight: 116.68 kg

DRUGS (18)
  1. CITALOPRAM [Concomitant]
     Active Substance: CITALOPRAM HYDROBROMIDE
     Indication: ANXIETY
  2. CITALOPRAM [Concomitant]
     Active Substance: CITALOPRAM HYDROBROMIDE
     Indication: DEPRESSION
  3. OXYCODONE [Concomitant]
     Active Substance: OXYCODONE
     Indication: PAIN
  4. TYLENOL [Concomitant]
     Active Substance: ACETAMINOPHEN
     Indication: PAIN
  5. NORCO [Concomitant]
     Active Substance: ACETAMINOPHEN\HYDROCODONE BITARTRATE
     Indication: PAIN
  6. VENTOLIN [Concomitant]
     Active Substance: ALBUTEROL SULFATE
     Indication: ASTHMA
     Dosage: AS NEEDED
  7. ZOCOR [Concomitant]
     Active Substance: SIMVASTATIN
     Indication: BLOOD CHOLESTEROL INCREASED
     Dosage: PM
  8. MIRENA [Concomitant]
     Active Substance: LEVONORGESTREL
     Indication: CONTRACEPTION
     Dosage: IUD
  9. HUMIRA [Suspect]
     Active Substance: ADALIMUMAB
     Indication: PSORIASIS
     Route: 058
     Dates: start: 20140511, end: 20140511
  10. LISINOPRIL. [Concomitant]
     Active Substance: LISINOPRIL
     Indication: HYPERTENSION
  11. PRILOSEC [Concomitant]
     Active Substance: OMEPRAZOLE MAGNESIUM
     Indication: GASTROOESOPHAGEAL REFLUX DISEASE
  12. SIMVASTATIN. [Concomitant]
     Active Substance: SIMVASTATIN
     Indication: BLOOD CHOLESTEROL INCREASED
  13. HUMIRA [Suspect]
     Active Substance: ADALIMUMAB
     Indication: PSORIATIC ARTHROPATHY
     Route: 058
     Dates: start: 20140316, end: 20140423
  14. GLIPIZIDE. [Concomitant]
     Active Substance: GLIPIZIDE
     Indication: DIABETES MELLITUS
  15. BUPROPION [Concomitant]
     Active Substance: BUPROPION
     Indication: DEPRESSION
  16. MORPHINE [Concomitant]
     Active Substance: MORPHINE
     Indication: PAIN
  17. HUMIRA [Suspect]
     Active Substance: ADALIMUMAB
     Route: 058
     Dates: start: 20140518, end: 20141014
  18. METFORMIN [Concomitant]
     Active Substance: METFORMIN HYDROCHLORIDE
     Indication: DIABETES MELLITUS

REACTIONS (9)
  - Fall [Recovering/Resolving]
  - Pain in extremity [Unknown]
  - Tibia fracture [Recovering/Resolving]
  - Arthralgia [Recovering/Resolving]
  - Drug ineffective [Not Recovered/Not Resolved]
  - Fall [Recovering/Resolving]
  - Fibula fracture [Recovering/Resolving]
  - Arthralgia [Recovering/Resolving]
  - Ankle fracture [Recovering/Resolving]

NARRATIVE: CASE EVENT DATE: 2014
